FAERS Safety Report 6275526-9 (Version None)
Quarter: 2009Q3

REPORT INFORMATION
  Report Type: 
  Country: None (occurrence: None)
  Receive Date: 20090721
  Receipt Date: 20090709
  Transmission Date: 20100115
  Serious: Yes (Hospitalization, Other)
  Sender: FDA-Public Use
  Company Number: NO-PFIZER INC-2009238621

PATIENT

DRUGS (5)
  1. DIFLUCAN [Suspect]
     Indication: CANDIDIASIS
     Dosage: UNK
     Route: 048
     Dates: start: 20090501, end: 20090613
  2. DIFLUCAN [Suspect]
     Dosage: UNK
     Route: 042
     Dates: start: 20090614, end: 20090709
  3. FORTUM [Suspect]
  4. TAZOCIN [Suspect]
  5. VANCOMYCIN [Suspect]

REACTIONS (4)
  - HYPERSENSITIVITY [None]
  - HYPOTENSION [None]
  - PYREXIA [None]
  - RASH [None]
